FAERS Safety Report 9809037 (Version 2)
Quarter: 2014Q1

REPORT INFORMATION
  Report Type: Spontaneous
  Country: DE (occurrence: DE)
  Receive Date: 20140110
  Receipt Date: 20140114
  Transmission Date: 20141002
  Serious: Yes (Disabling)
  Sender: FDA-Public Use
  Company Number: DE-GLAXOSMITHKLINE-D0082256A

PATIENT
  Age: 63 Year
  Sex: Female
  Weight: 108 kg

DRUGS (6)
  1. ATMADISC [Suspect]
     Indication: ASTHMA
     Dosage: 300MCG TWICE PER DAY
     Route: 055
     Dates: start: 20060103, end: 201312
  2. FLECAINIDE ACETATE [Concomitant]
     Dosage: 50MG PER DAY
     Route: 048
  3. CANDESARTAN [Concomitant]
     Indication: HYPERTENSION
     Dosage: 8MG PER DAY
     Route: 048
  4. MARCUMAR [Concomitant]
     Route: 048
  5. CALCIUM [Concomitant]
     Dosage: 300MG PER DAY
     Route: 048
  6. MAGNESIUM [Concomitant]
     Dosage: 200MG PER DAY
     Route: 048

REACTIONS (9)
  - Pneumonia [Unknown]
  - Osteoporosis [Not Recovered/Not Resolved]
  - Bone density decreased [Unknown]
  - Myalgia [Unknown]
  - Bone pain [Unknown]
  - Influenza like illness [Unknown]
  - Oropharyngeal pain [Unknown]
  - Nasopharyngitis [Unknown]
  - Cough [Unknown]
